FAERS Safety Report 5919369-1 (Version None)
Quarter: 2008Q3

REPORT INFORMATION
  Report Type: 
  Country: None (occurrence: None)
  Receive Date: 20080909
  Receipt Date: 20070808
  Transmission Date: 20090109
  Serious: Yes (Hospitalization)
  Sender: FDA-Public Use
  Company Number: 163-20785-07040463

PATIENT
  Age: 60 Year
  Sex: Female

DRUGS (17)
  1. THALOMID [Suspect]
     Indication: MULTIPLE MYELOMA
     Dosage: ORAL
     Route: 048
  2. DEXAMETHASONE TAB [Suspect]
     Indication: MULTIPLE MYELOMA
     Dosage: 20 MG, DAYS 1-4, ORAL
     Route: 048
     Dates: start: 20060912, end: 20060915
  3. MELPHALAN (MELPHALAN) [Suspect]
     Indication: MULTIPLE MYELOMA
     Dosage: 200 MG/M2, INTRAVENOUS
     Route: 042
     Dates: start: 20060913, end: 20060913
  4. VELCADE [Suspect]
     Indication: MULTIPLE MYELOMA
  5. ADRIAMYCIN PFS [Suspect]
     Indication: MULTIPLE MYELOMA
  6. CYCLOPHOSPHAMIDE [Suspect]
     Indication: MULTIPLE MYELOMA
  7. ETOPOSIDE [Suspect]
     Indication: MULTIPLE MYELOMA
  8. ZOLPIDEM TARTRATE [Concomitant]
  9. ATIVAN [Concomitant]
  10. ACYCLOVIR [Concomitant]
  11. PROTONIX [Concomitant]
  12. BENICAR [Concomitant]
  13. AMLODIPINE (AMLODIPINE) [Concomitant]
  14. EPO (EPOETIN NOS) [Concomitant]
  15. LOPERAMIDE [Concomitant]
  16. FOLIC ACID [Concomitant]
  17. MULTIVITAMIN [Concomitant]

REACTIONS (1)
  - COLITIS [None]
